FAERS Safety Report 20808181 (Version 1)
Quarter: 2022Q2

REPORT INFORMATION
  Report Type: Spontaneous
  Country: HR (occurrence: HR)
  Receive Date: 20220510
  Receipt Date: 20220510
  Transmission Date: 20220721
  Serious: Yes (Other)
  Sender: FDA-Public Use
  Company Number: HR-SA-SAC20220429000077

PATIENT
  Age: 10 Year
  Sex: Female

DRUGS (1)
  1. IMIGLUCERASE [Suspect]
     Active Substance: IMIGLUCERASE
     Indication: Gaucher^s disease
     Dosage: UNK
     Dates: start: 201305

REACTIONS (10)
  - Intellectual disability [Unknown]
  - Bone density decreased [Unknown]
  - Upper limb fracture [Unknown]
  - Restrictive pulmonary disease [Unknown]
  - Electroencephalogram abnormal [Unknown]
  - Apathy [Unknown]
  - Disturbance in attention [Unknown]
  - Splenomegaly [Unknown]
  - Condition aggravated [Unknown]
  - Hepatomegaly [Unknown]

NARRATIVE: CASE EVENT DATE: 20190901
